FAERS Safety Report 5826447-4 (Version None)
Quarter: 2008Q3

REPORT INFORMATION
  Report Type: 
  Country: None (occurrence: None)
  Receive Date: 20080729
  Receipt Date: 20080717
  Transmission Date: 20090109
  Serious: Yes (Death)
  Sender: FDA-Public Use
  Company Number: JP-PFIZER INC-2008062374

PATIENT
  Age: 74 Year
  Sex: Female

DRUGS (3)
  1. CAMPTOSAR [Suspect]
     Indication: COLON CANCER
     Dosage: DAILY DOSE:140MG
     Route: 042
     Dates: start: 20080605, end: 20080701
  2. FLUOROURACIL [Suspect]
     Indication: COLON CANCER
     Dosage: TEXT:370 MG BOLUS, 2250 MG INFUSION
     Route: 042
     Dates: start: 20080605, end: 20080701
  3. LEUCOVORIN CALCIUM [Concomitant]
     Indication: COLON CANCER
     Dosage: DAILY DOSE:236MG
     Route: 042
     Dates: start: 20080605, end: 20080701

REACTIONS (1)
  - HYPONATRAEMIA [None]
